FAERS Safety Report 15784616 (Version 1)
Quarter: 2019Q1

REPORT INFORMATION
  Report Type: Spontaneous
  Country: GB (occurrence: GB)
  Receive Date: 20190103
  Receipt Date: 20190103
  Transmission Date: 20190417
  Serious: No
  Sender: FDA-Public Use
  Company Number: GB-ALKEM LABORATORIES LIMITED-GB-ALKEM-2017-01870

PATIENT
  Age: 22 Year
  Sex: Male

DRUGS (5)
  1. TACROLIMUS. [Suspect]
     Active Substance: TACROLIMUS
     Indication: AUTOIMMUNE HEPATITIS
     Route: 065
  2. PREDNISOLONE. [Suspect]
     Active Substance: PREDNISOLONE
     Indication: AUTOIMMUNE HEPATITIS
     Dosage: UNK
     Route: 065
     Dates: start: 2012, end: 2013
  3. MYCOPHENOLATE MOFETIL. [Suspect]
     Active Substance: MYCOPHENOLATE MOFETIL
     Indication: AUTOIMMUNE HEPATITIS
     Dosage: UNK
     Route: 065
     Dates: start: 2012, end: 2013
  4. AZATHIOPRINE. [Suspect]
     Active Substance: AZATHIOPRINE
     Indication: AUTOIMMUNE HEPATITIS
     Dosage: UNK
     Route: 065
     Dates: start: 2012, end: 2013
  5. BUDESONIDE. [Concomitant]
     Active Substance: BUDESONIDE
     Indication: AUTOIMMUNE HEPATITIS

REACTIONS (1)
  - Remission not achieved [Unknown]
